FAERS Safety Report 4345450-7 (Version None)
Quarter: 2004Q2

REPORT INFORMATION
  Report Type: 
  Country: None (occurrence: None)
  Receive Date: 20040421
  Receipt Date: 20040407
  Transmission Date: 20050107
  Serious: Yes (Hospitalization)
  Sender: FDA-Public Use
  Company Number: 2004-FF-00244FF

PATIENT
  Age: 70 Year
  Sex: Female

DRUGS (6)
  1. MICARDIS [Suspect]
     Indication: ESSENTIAL HYPERTENSION
     Dosage: MG (MG, 1 IN 1 D) PO
     Route: 048
     Dates: end: 20040122
  2. ZOCOR [Concomitant]
  3. PHYSIOTENS [Concomitant]
  4. NOCTAMIDE [Concomitant]
  5. PROPOFOL [Concomitant]
  6. TETRAZEPAM (TETRAZEPAM) [Concomitant]

REACTIONS (6)
  - BLOOD CREATINE PHOSPHOKINASE INCREASED [None]
  - BLOOD PRESSURE INCREASED [None]
  - GAMMA-GLUTAMYLTRANSFERASE INCREASED [None]
  - MUSCULOSKELETAL STIFFNESS [None]
  - PAIN [None]
  - WEIGHT DECREASED [None]
